FAERS Safety Report 6535305-1 (Version None)
Quarter: 2010Q1

REPORT INFORMATION
  Report Type: 
  Country: None (occurrence: None)
  Receive Date: 20100113
  Receipt Date: 20091222
  Transmission Date: 20100710
  Serious: No
  Sender: FDA-Public Use
  Company Number: JP-ROCHE-677695

PATIENT

DRUGS (2)
  1. TAMIFLU [Suspect]
     Indication: DRUG USE FOR UNKNOWN INDICATION
     Route: 048
     Dates: start: 20091221, end: 20091221
  2. TAMIFLU [Suspect]
     Route: 048
     Dates: start: 20091222, end: 20091222

REACTIONS (1)
  - OVERDOSE [None]
